FAERS Safety Report 9933437 (Version 2)
Quarter: 2014Q1

REPORT INFORMATION
  Report Type: Report from Study
  Country: US (occurrence: US)
  Receive Date: 20140228
  Receipt Date: 20140228
  Transmission Date: 20141002
  Serious: No
  Sender: FDA-Public Use
  Company Number: US-MYLANLABS-2013S1019990

PATIENT
  Age: 55 Year
  Sex: Female

DRUGS (4)
  1. AMNESTEEM CAPSULES [Suspect]
     Indication: ACNE
     Dosage: WITH FOOD
     Route: 048
     Dates: start: 20130701, end: 20130903
  2. SOLARAZE [Concomitant]
     Dosage: GEL FOR AK FACE
     Route: 061
     Dates: start: 20130802
  3. HYDROCORTISONE [Concomitant]
     Indication: ECZEMA
     Dosage: CREAM
     Route: 061
  4. CLOBETASOL [Concomitant]
     Indication: ECZEMA
     Dosage: TS

REACTIONS (4)
  - Arthralgia [Recovered/Resolved]
  - Rash [Recovered/Resolved]
  - Urticaria [Recovered/Resolved]
  - Feeling hot [Recovered/Resolved]
